FAERS Safety Report 8613372-9 (Version None)
Quarter: 2012Q3

REPORT INFORMATION
  Report Type: 
  Country: None (occurrence: None)
  Receive Date: 20120822
  Receipt Date: 20100215
  Transmission Date: 20120928
  Serious: Yes (Death)
  Sender: FDA-Public Use
  Company Number: PHHY2010GT094390

PATIENT
  Sex: Female

DRUGS (1)
  1. IMATINIB MESYLATE [Suspect]
     Dosage: UNK
     Dates: start: 20091013

REACTIONS (2)
  - RESPIRATORY ARREST [None]
  - COMA [None]
